FAERS Safety Report 14404209 (Version 1)
Quarter: 2018Q1

REPORT INFORMATION
  Report Type: Report from Study
  Country: US (occurrence: US)
  Receive Date: 20180117
  Receipt Date: 20180117
  Transmission Date: 20180509
  Serious: Yes (Hospitalization, Other)
  Sender: FDA-Public Use
  Company Number: US-SHIRE-US201735088

PATIENT
  Age: 65 Year
  Sex: Female

DRUGS (2)
  1. NATPARA (PARATHYROID HORMONE) [Suspect]
     Active Substance: PARATHYROID HORMONE
     Dosage: 1 MG, 1X/DAY:QD
     Dates: start: 20171024, end: 20171219
  2. NATPARA (PARATHYROID HORMONE) [Suspect]
     Active Substance: PARATHYROID HORMONE
     Indication: HYPOPARATHYROIDISM
     Dosage: 100 ?G, 1X/DAY:QD
     Route: 058
     Dates: start: 20160727

REACTIONS (3)
  - Pneumonia [Recovering/Resolving]
  - Drug dose omission [Recovered/Resolved]
  - Exposure to mould [Not Recovered/Not Resolved]

NARRATIVE: CASE EVENT DATE: 20171220
